FAERS Safety Report 8823162 (Version 1)
Quarter: 2012Q4

REPORT INFORMATION
  Report Type: 
  Country: DE (occurrence: DE)
  Receive Date: 20121003
  Receipt Date: 20121003
  Transmission Date: 20130627
  Serious: Yes (Hospitalization)
  Sender: FDA-Public Use
  Company Number: DE-PFIZER INC-2012241233

PATIENT
  Sex: Female
  Weight: 85 kg

DRUGS (12)
  1. GENOTROPIN [Suspect]
     Indication: GROWTH HORMONE DEFICIENCY
     Dosage: 0.6 mg, 7/wk
     Route: 058
     Dates: start: 20070313
  2. HYDROCORTISONE [Concomitant]
     Indication: BLOOD CORTICOTROPHIN DECREASED
     Dosage: UNK
     Dates: start: 20020712
  3. AZATHIOPRINE [Concomitant]
     Indication: PULMONARY FIBROSIS
     Dosage: UNK
     Dates: start: 20020715
  4. LEVODOPA-CARBIDOPA [Concomitant]
     Indication: RESTLESS LEGS SYNDROME
     Dosage: UNK
     Dates: start: 20040715
  5. LEVOTHYROXINE [Concomitant]
     Indication: BLOOD THYROID STIMULATING HORMONE DECREASED
     Dosage: UNK
     Dates: start: 20020712
  6. LEVOTHYROXINE [Concomitant]
     Indication: PRIMARY HYPOTHYROIDISM
  7. MINRIN [Concomitant]
     Indication: BLOOD ANTIDIURETIC HORMONE DECREASED
     Dosage: UNK
     Dates: start: 20070615
  8. MINRIN [Concomitant]
     Indication: PRIMARY HYPOTHYROIDISM
  9. DESMOPRESSIN [Concomitant]
     Indication: BLOOD ANTIDIURETIC HORMONE DECREASED
     Dosage: UNK
     Dates: start: 20020712, end: 20071019
  10. PRESOMEN [Concomitant]
     Indication: BLOOD LUTEINISING HORMONE DECREASED
     Dosage: UNK
     Dates: start: 20050315, end: 20071019
  11. PRESOMEN [Concomitant]
     Indication: BLOOD FOLLICLE STIMULATING HORMONE DECREASED
  12. PRESOMEN [Concomitant]
     Indication: HYPOGONADISM FEMALE

REACTIONS (1)
  - Appendix disorder [Unknown]
